FAERS Safety Report 17694498 (Version 2)
Quarter: 2020Q3

REPORT INFORMATION
  Report Type: Spontaneous
  Country: AU (occurrence: AU)
  Receive Date: 20200422
  Receipt Date: 20200716
  Transmission Date: 20201102
  Serious: Yes (Other)
  Sender: FDA-Public Use
  Company Number: AU-JNJFOC-20200338863

PATIENT
  Age: 55 Year
  Sex: Male

DRUGS (1)
  1. REMICADE [Suspect]
     Active Substance: INFLIXIMAB
     Indication: PRODUCT USED FOR UNKNOWN INDICATION
     Route: 042
     Dates: start: 201607, end: 201708

REACTIONS (5)
  - Serum ferritin decreased [Unknown]
  - Infusion related reaction [Unknown]
  - Drug level decreased [Unknown]
  - Haemoglobin decreased [Unknown]
  - Drug specific antibody [Unknown]
